FAERS Safety Report 8372676-8 (Version None)
Quarter: 2012Q2

REPORT INFORMATION
  Report Type: 
  Country: None (occurrence: None)
  Receive Date: 20120521
  Receipt Date: 20120514
  Transmission Date: 20120825
  Serious: Yes (Hospitalization)
  Sender: FDA-Public Use
  Company Number: US-BAYER-2011-042265

PATIENT
  Age: 34 Year
  Sex: Female
  Weight: 83 kg

DRUGS (8)
  1. YASMIN [Suspect]
     Indication: HIRSUTISM
  2. ACIPHEX [Concomitant]
     Dosage: 20 MG, QD
     Route: 048
  3. IBUPROFEN [Concomitant]
     Dosage: 400 MG, PRN
  4. YASMIN [Suspect]
     Indication: MENORRHAGIA
  5. METFORMIN HCL [Concomitant]
     Indication: HIRSUTISM
     Dosage: UNK
     Dates: start: 20061207
  6. YASMIN [Suspect]
     Indication: ACNE
     Dosage: UNK
     Dates: start: 20061117, end: 20061217
  7. YASMIN [Suspect]
     Indication: POLYCYSTIC OVARIES
  8. NIRAVAM [Concomitant]
     Dosage: 2 MG, QD
     Route: 048

REACTIONS (33)
  - THROMBOCYTOPENIA [None]
  - DEEP VEIN THROMBOSIS [None]
  - MALIGNANT PLEURAL EFFUSION [None]
  - INTESTINAL ISCHAEMIA [None]
  - GENERAL PHYSICAL HEALTH DETERIORATION [None]
  - BACK PAIN [None]
  - MULTIPLE INJURIES [None]
  - CELLULITIS [None]
  - DEPRESSION [None]
  - PORTAL VEIN THROMBOSIS [None]
  - HEPATIC HAEMORRHAGE [None]
  - NIGHTMARE [None]
  - ABDOMINAL PAIN [None]
  - ANAEMIA [None]
  - PAIN [None]
  - ANXIETY [None]
  - CHOLECYSTECTOMY [None]
  - GASTROINTESTINAL HAEMORRHAGE [None]
  - HYPERCOAGULATION [None]
  - MESENTERIC VEIN THROMBOSIS [None]
  - PERITONEAL HAEMORRHAGE [None]
  - MENTAL DISORDER [None]
  - DYSPNOEA [None]
  - HEPATIC HAEMATOMA [None]
  - HYPOKALAEMIA [None]
  - HEPATITIS ACUTE [None]
  - POST THROMBOTIC SYNDROME [None]
  - EMOTIONAL DISTRESS [None]
  - MENORRHAGIA [None]
  - URINARY TRACT INFECTION [None]
  - PAIN IN EXTREMITY [None]
  - TREATMENT NONCOMPLIANCE [None]
  - SPLENIC VEIN THROMBOSIS [None]
